FAERS Safety Report 23612668 (Version 1)
Quarter: 2024Q1

REPORT INFORMATION
  Report Type: Spontaneous
  Country: JP (occurrence: JP)
  Receive Date: 20240308
  Receipt Date: 20240308
  Transmission Date: 20240410
  Serious: Yes (Other)
  Sender: FDA-Public Use
  Company Number: JP-Eisai-202307472_LEN-EC_P_1

PATIENT
  Sex: Female

DRUGS (40)
  1. LENVATINIB [Suspect]
     Active Substance: LENVATINIB
     Indication: Endometrial cancer
     Route: 048
     Dates: start: 20220808, end: 20220828
  2. LENVATINIB [Suspect]
     Active Substance: LENVATINIB
     Route: 048
     Dates: start: 20220829, end: 20220926
  3. LENVATINIB [Suspect]
     Active Substance: LENVATINIB
     Route: 048
     Dates: start: 20221017, end: 20221030
  4. LENVATINIB [Suspect]
     Active Substance: LENVATINIB
     Route: 048
     Dates: start: 20221031, end: 20221118
  5. LENVATINIB [Suspect]
     Active Substance: LENVATINIB
     Route: 048
     Dates: start: 20221212, end: 20221226
  6. KEYTRUDA [Suspect]
     Active Substance: PEMBROLIZUMAB
     Indication: Endometrial cancer
     Route: 041
     Dates: start: 20220808, end: 20220808
  7. KEYTRUDA [Suspect]
     Active Substance: PEMBROLIZUMAB
     Route: 041
     Dates: start: 20220905, end: 20221017
  8. KEYTRUDA [Suspect]
     Active Substance: PEMBROLIZUMAB
     Route: 041
     Dates: start: 20221114, end: 20221114
  9. LEVOTHYROXINE SODIUM [Concomitant]
     Active Substance: LEVOTHYROXINE SODIUM
     Indication: Product used for unknown indication
     Dosage: DOSE AND FREQUENCY UNKNOWN
     Route: 048
  10. HYDROCORTISONE [Concomitant]
     Active Substance: HYDROCORTISONE
     Indication: Product used for unknown indication
     Dosage: DOSE AND FREQUENCY UNKNOWN
     Route: 048
  11. ANASTROZOLE [Concomitant]
     Active Substance: ANASTROZOLE
     Dosage: DOSE AND FREQUENCY UNKNOWN
     Route: 065
  12. METHYLCOBALAMIN [Concomitant]
     Active Substance: METHYLCOBALAMIN
     Indication: Product used for unknown indication
     Dosage: DOSE AND FREQUENCY UNKNOWN
     Route: 065
  13. GLYCOSAMINOGLYCANS [Concomitant]
     Active Substance: GLYCOSAMINOGLYCANS
     Indication: Skin disorder
     Dosage: DOSE AND FREQUENCY UNKNOWN
     Route: 065
     Dates: start: 20220808
  14. LORATADINE [Concomitant]
     Active Substance: LORATADINE
     Indication: Skin disorder
     Route: 065
     Dates: start: 20220926
  15. LORATADINE [Concomitant]
     Active Substance: LORATADINE
     Route: 065
     Dates: start: 20220916, end: 20220925
  16. MYSER [Concomitant]
     Indication: Skin disorder
     Dosage: DOSE AND FREQUENCY UNKNOWN
     Route: 061
     Dates: start: 20220922
  17. NEO-MINOPHAGEN C [Concomitant]
     Active Substance: AMMONIUM GLYCYRRHIZATE
     Indication: Hepatic function abnormal
     Route: 065
     Dates: start: 20220926
  18. BETAMETHASONE DIPROPIONATE [Concomitant]
     Active Substance: BETAMETHASONE DIPROPIONATE
     Indication: Skin disorder
     Dosage: DOSE AND FREQUENCY UNKNOWN
     Route: 061
     Dates: start: 20220926
  19. LEVOTHYROXINE [Concomitant]
     Active Substance: LEVOTHYROXINE\LEVOTHYROXINE SODIUM
     Indication: Thyroiditis
     Dosage: DOSE AND FREQUENCY UNKNOWN
     Route: 065
     Dates: start: 20221115, end: 20221205
  20. LEVOTHYROXINE [Concomitant]
     Active Substance: LEVOTHYROXINE\LEVOTHYROXINE SODIUM
     Dosage: DOSE AND FREQUENCY UNKNOWN
     Route: 065
     Dates: start: 20221206
  21. LEVOTHYROXINE [Concomitant]
     Active Substance: LEVOTHYROXINE\LEVOTHYROXINE SODIUM
     Dosage: DOSE AND FREQUENCY UNKNOWN
     Route: 065
     Dates: start: 20221017, end: 20221114
  22. CLOBETASOL [Concomitant]
     Active Substance: CLOBETASOL
     Indication: Skin disorder
     Dosage: DOSE AND FREQUENCY UNKNOWN
     Route: 061
     Dates: start: 20221024
  23. FEXOFENADINE HYDROCHLORIDE [Concomitant]
     Active Substance: FEXOFENADINE HYDROCHLORIDE
     Indication: Skin disorder
     Route: 065
     Dates: start: 20221107, end: 20221114
  24. FEXOFENADINE HYDROCHLORIDE [Concomitant]
     Active Substance: FEXOFENADINE HYDROCHLORIDE
     Route: 065
     Dates: start: 20221024, end: 20221106
  25. MINOCYCLINE HYDROCHLORIDE [Concomitant]
     Active Substance: MINOCYCLINE HYDROCHLORIDE
     Indication: Skin disorder
     Route: 065
     Dates: start: 20221031
  26. NICOTINAMIDE [Concomitant]
     Active Substance: NIACINAMIDE
     Indication: Skin disorder
     Route: 065
     Dates: start: 20221031
  27. AZUNOL [Concomitant]
     Indication: Stomatitis
     Route: 065
     Dates: start: 20221107
  28. MICONAZOLE [Concomitant]
     Active Substance: MICONAZOLE
     Indication: Stomatitis
     Route: 065
     Dates: start: 20221114
  29. FUNGIZONE [Concomitant]
     Active Substance: AMPHOTERICIN B
     Indication: Stomatitis
     Route: 065
     Dates: start: 20221121
  30. BETAMETHASONE DIPROPIONATE\CALCIPOTRIENE MONOHYDRATE [Concomitant]
     Active Substance: BETAMETHASONE DIPROPIONATE\CALCIPOTRIENE MONOHYDRATE
     Indication: Skin disorder
     Dosage: DOSE AND FREQUENCY UNKNOWN
     Route: 061
     Dates: start: 20221212
  31. PREDNISOLONE [Concomitant]
     Active Substance: PREDNISOLONE
     Indication: Pulmonary toxicity
     Route: 065
     Dates: start: 20221228, end: 20230103
  32. PREDNISOLONE [Concomitant]
     Active Substance: PREDNISOLONE
     Route: 065
     Dates: start: 20220104, end: 20230109
  33. PREDNISOLONE [Concomitant]
     Active Substance: PREDNISOLONE
     Route: 065
     Dates: start: 20220110, end: 20230116
  34. PREDNISOLONE [Concomitant]
     Active Substance: PREDNISOLONE
     Route: 065
     Dates: start: 20220117
  35. PREDNISOLONE [Concomitant]
     Active Substance: PREDNISOLONE
     Dosage: DOSE AND FREQUENCY UNKNOWN
     Route: 065
     Dates: start: 20221226
  36. DOCETAXEL [Concomitant]
     Active Substance: DOCETAXEL\DOCETAXEL ANHYDROUS
     Indication: Product used for unknown indication
     Dosage: DOSE AND FREQUENCY UNKNOWN
     Route: 065
  37. DOCETAXEL [Concomitant]
     Active Substance: DOCETAXEL\DOCETAXEL ANHYDROUS
     Route: 065
     Dates: start: 20221228, end: 20230103
  38. DOCETAXEL [Concomitant]
     Active Substance: DOCETAXEL\DOCETAXEL ANHYDROUS
     Route: 065
     Dates: start: 20230104, end: 20230109
  39. DOCETAXEL [Concomitant]
     Active Substance: DOCETAXEL\DOCETAXEL ANHYDROUS
     Route: 065
     Dates: start: 20230110, end: 20230116
  40. DOCETAXEL [Concomitant]
     Active Substance: DOCETAXEL\DOCETAXEL ANHYDROUS
     Route: 065
     Dates: start: 20230117

REACTIONS (10)
  - Immune-mediated adrenal insufficiency [Unknown]
  - Pulmonary toxicity [Recovering/Resolving]
  - Skin disorder [Recovering/Resolving]
  - Thyroiditis [Unknown]
  - Hepatic function abnormal [Recovered/Resolved]
  - Palmar-plantar erythrodysaesthesia syndrome [Recovering/Resolving]
  - Hypothyroidism [Unknown]
  - Stomatitis [Unknown]
  - Decreased appetite [Unknown]
  - Deep vein thrombosis [Unknown]

NARRATIVE: CASE EVENT DATE: 20220822
